FAERS Safety Report 19924258 (Version 3)
Quarter: 2021Q4

REPORT INFORMATION
  Report Type: Report from Study
  Country: TW (occurrence: TW)
  Receive Date: 20211006
  Receipt Date: 20211126
  Transmission Date: 20220304
  Serious: Yes (Other)
  Sender: FDA-Public Use
  Company Number: TW-BAYER-2021-207675

PATIENT

DRUGS (6)
  1. EYLEA [Suspect]
     Active Substance: AFLIBERCEPT
     Indication: Neovascular age-related macular degeneration
     Dosage: 2 DF, ONCE, RIGHT EYE
     Route: 031
     Dates: start: 20210430, end: 20210430
  2. EYLEA [Suspect]
     Active Substance: AFLIBERCEPT
     Dosage: 2 DF, ONCE, RIGHT EYE
     Route: 031
     Dates: start: 20210602, end: 20210602
  3. EYLEA [Suspect]
     Active Substance: AFLIBERCEPT
     Dosage: 2 DF, ONCE, RIGHT EYE
     Route: 031
     Dates: start: 20210705, end: 20210705
  4. EYLEA [Suspect]
     Active Substance: AFLIBERCEPT
     Dosage: 2 DF, ONCE, RIGHT EYE
     Route: 031
     Dates: start: 20210830, end: 20210830
  5. EYLEA [Suspect]
     Active Substance: AFLIBERCEPT
     Dosage: 2 DF, ONCE, RIGHT EYE
     Route: 031
     Dates: start: 20210927, end: 20210927
  6. EYLEA [Suspect]
     Active Substance: AFLIBERCEPT
     Dosage: 2 DF, ONCE, RIGHT EYE
     Route: 031
     Dates: start: 20211026

REACTIONS (5)
  - Blindness transient [Recovered/Resolved]
  - Product prescribing issue [Unknown]
  - Inappropriate schedule of product administration [Unknown]
  - Depressed mood [Not Recovered/Not Resolved]
  - Asthenia [Not Recovered/Not Resolved]

NARRATIVE: CASE EVENT DATE: 20210430
